FAERS Safety Report 16276456 (Version 1)
Quarter: 2019Q2

REPORT INFORMATION
  Report Type: Spontaneous
  Country: US (occurrence: US)
  Receive Date: 20190505
  Receipt Date: 20190505
  Transmission Date: 20190711
  Serious: Yes (Other)
  Sender: FDA-Public Use
  Company Number: None

PATIENT
  Age: 42 Year
  Sex: Female
  Weight: 71.7 kg

DRUGS (10)
  1. BENZTROPINE 2MG PO DAILY [Concomitant]
     Dates: start: 20180505
  2. TRULANCE [Suspect]
     Active Substance: PLECANATIDE
     Indication: IRRITABLE BOWEL SYNDROME
     Route: 048
     Dates: start: 20190429, end: 20190505
  3. RISPERADONE 2MG PO HS [Concomitant]
     Dates: start: 20180507
  4. BIKTARVY 1 TAB PO DAILY [Concomitant]
     Dates: start: 20180507
  5. HYDROCHLOROTHIAZIDE 25MG PO DAILY [Concomitant]
     Dates: start: 20180508
  6. OMPERAZOLE 20MG PO DAILY [Concomitant]
     Dates: start: 20180507
  7. ATORVASTATIN 10MG PO HS [Concomitant]
     Dates: start: 20180507
  8. QUETIAPINE 50MG PO QAM + 100MG PO HS [Concomitant]
     Dates: start: 20180820
  9. IBUPROFEN 800MG PO TID PRN [Concomitant]
     Dates: start: 20180507
  10. GABAPENTIN 300MG PO TID [Concomitant]
     Dates: start: 20180507

REACTIONS (1)
  - Liver function test increased [None]

NARRATIVE: CASE EVENT DATE: 20190505
